FAERS Safety Report 20025284 (Version 1)
Quarter: 2021Q4

REPORT INFORMATION
  Report Type: Report from Study
  Country: FR (occurrence: FR)
  Receive Date: 20211102
  Receipt Date: 20211102
  Transmission Date: 20220304
  Serious: Yes (Death)
  Sender: FDA-Public Use
  Company Number: FR-VER-202100106

PATIENT
  Age: 74 Year
  Sex: Male

DRUGS (1)
  1. TRIPTORELIN [Suspect]
     Active Substance: TRIPTORELIN
     Indication: Product used for unknown indication
     Route: 065

REACTIONS (1)
  - Cardiac failure [Fatal]

NARRATIVE: CASE EVENT DATE: 20210308
